FAERS Safety Report 10684417 (Version 2)
Quarter: 2015Q1

REPORT INFORMATION
  Report Type: Spontaneous
  Country: US (occurrence: None)
  Receive Date: 20141229
  Receipt Date: 20150126
  Transmission Date: 20150720
  Serious: Yes (Other)
  Sender: FDA-Public Use
  Company Number: 2014SUP00099

PATIENT
  Age: 51 Year
  Sex: Female
  Weight: 86.2 kg

DRUGS (7)
  1. TROKENDI XR [Suspect]
     Active Substance: TOPIRAMATE
     Indication: MIGRAINE
     Dosage: 25 MG, 1X/DAY, ORAL
     Route: 048
     Dates: start: 20141216
  2. HYDROCHLOROTHIAZIDE. [Concomitant]
     Active Substance: HYDROCHLOROTHIAZIDE
  3. BABY ASPIRIN [Concomitant]
     Active Substance: ASPIRIN
  4. SEROQUEL [Concomitant]
     Active Substance: QUETIAPINE FUMARATE
  5. PANTOPRAZOLE [Concomitant]
     Active Substance: PANTOPRAZOLE SODIUM
  6. TROKENDI XR [Suspect]
     Active Substance: TOPIRAMATE
     Indication: SEIZURE
     Dosage: 25 MG, 1X/DAY, ORAL
     Route: 048
     Dates: start: 20141216
  7. KLONOPIN [Concomitant]
     Active Substance: CLONAZEPAM

REACTIONS (10)
  - Swollen tongue [None]
  - Swelling face [None]
  - Tinnitus [None]
  - Pruritus [None]
  - Abnormal sensation in eye [None]
  - Paraesthesia [None]
  - Off label use [None]
  - Muscle spasms [None]
  - Eyelid oedema [None]
  - Blood pressure increased [None]

NARRATIVE: CASE EVENT DATE: 20141216
